FAERS Safety Report 21676150 (Version 1)
Quarter: 2022Q4

REPORT INFORMATION
  Report Type: Spontaneous
  Country: US (occurrence: US)
  Receive Date: 20221202
  Receipt Date: 20221202
  Transmission Date: 20230113
  Serious: Yes (Other)
  Sender: FDA-Public Use
  Company Number: US-sptaiwan-2022SUN003316

PATIENT
  Age: 10 Year
  Sex: Male
  Weight: 31.746 kg

DRUGS (3)
  1. LATUDA [Suspect]
     Active Substance: LURASIDONE HYDROCHLORIDE
     Indication: Mixed anxiety and depressive disorder
     Dosage: 10 MG, QD (HALF 20MG TABL IN THE MORNING)
     Route: 048
     Dates: start: 20221118, end: 20221119
  2. LATUDA [Suspect]
     Active Substance: LURASIDONE HYDROCHLORIDE
     Dosage: 20 MG, QD (IN THE MORNING)
     Route: 048
     Dates: start: 20221120, end: 20221125
  3. SERTRALINE [Concomitant]
     Active Substance: SERTRALINE HYDROCHLORIDE
     Indication: Anxiety
     Dosage: 25 MG, BID ( 25MG IN THE MORNING AND 25MG AT NIGHT)
     Route: 065

REACTIONS (13)
  - Suicidal ideation [Not Recovered/Not Resolved]
  - Negative thoughts [Not Recovered/Not Resolved]
  - Feeling guilty [Not Recovered/Not Resolved]
  - Fear [Not Recovered/Not Resolved]
  - Thinking abnormal [Not Recovered/Not Resolved]
  - Paranoia [Not Recovered/Not Resolved]
  - Emotional distress [Not Recovered/Not Resolved]
  - Panic attack [Not Recovered/Not Resolved]
  - Anxiety [Not Recovered/Not Resolved]
  - Decreased appetite [Recovering/Resolving]
  - Off label use [Unknown]
  - Wrong technique in product usage process [Unknown]
  - Underdose [Unknown]

NARRATIVE: CASE EVENT DATE: 20221123
